FAERS Safety Report 12745896 (Version 1)
Quarter: 2016Q3

REPORT INFORMATION
  Report Type: Spontaneous
  Country: US (occurrence: US)
  Receive Date: 20160915
  Receipt Date: 20160915
  Transmission Date: 20161109
  Serious: No
  Sender: FDA-Public Use
  Company Number: US-VIIV HEALTHCARE LIMITED-US2016GSK132962

PATIENT
  Age: 50 Year
  Sex: Male

DRUGS (1)
  1. TRIUMEQ [Suspect]
     Active Substance: ABACAVIR SULFATE\DOLUTEGRAVIR SODIUM\LAMIVUDINE
     Indication: HIV INFECTION
     Dosage: UNK UNK, QD
     Dates: end: 201607

REACTIONS (5)
  - Liver function test increased [Recovered/Resolved]
  - Oedema peripheral [Unknown]
  - Gamma-glutamyltransferase abnormal [Recovered/Resolved]
  - Hepatic steatosis [Unknown]
  - Waist circumference increased [Unknown]
